FAERS Safety Report 11693393 (Version 1)
Quarter: 2015Q4

REPORT INFORMATION
  Report Type: Spontaneous
  Country: CA (occurrence: CA)
  Receive Date: 20151103
  Receipt Date: 20151103
  Transmission Date: 20160304
  Serious: Yes (Other)
  Sender: FDA-Public Use
  Company Number: CA-PFIZER INC-2015365592

PATIENT
  Sex: Female

DRUGS (2)
  1. VFEND [Suspect]
     Active Substance: VORICONAZOLE
     Indication: ASPERGILLUS INFECTION
     Dosage: 300 MG, 2X/DAY
     Route: 042
     Dates: start: 201408, end: 201408
  2. VFEND [Suspect]
     Active Substance: VORICONAZOLE
     Indication: ASPERGILLUS INFECTION
     Dosage: 300 MG, 2X/DAY
     Dates: start: 201408, end: 201504

REACTIONS (12)
  - Ectopic pregnancy [Recovered/Resolved]
  - Gallbladder disorder [Recovered/Resolved]
  - Burning sensation [Not Recovered/Not Resolved]
  - Alopecia [Recovered/Resolved]
  - Visual impairment [Recovered/Resolved]
  - Pain in extremity [Not Recovered/Not Resolved]
  - Photosensitivity reaction [Recovered/Resolved]
  - Sunburn [Recovered/Resolved]
  - Liver function test abnormal [Recovered/Resolved]
  - Hypoaesthesia [Recovering/Resolving]
  - Muscular weakness [Not Recovered/Not Resolved]
  - Fall [Unknown]

NARRATIVE: CASE EVENT DATE: 201408
